FAERS Safety Report 8130018-7 (Version None)
Quarter: 2012Q1

REPORT INFORMATION
  Report Type: 
  Country: None (occurrence: None)
  Receive Date: 20120210
  Receipt Date: 20120208
  Transmission Date: 20120608
  Serious: Yes (Death, Other)
  Sender: FDA-Public Use
  Company Number: CA-ABBOTT-11P-028-0704570-00

PATIENT
  Age: 45 Year
  Sex: Male

DRUGS (2)
  1. KALETRA [Suspect]
     Indication: PRODUCT USED FOR UNKNOWN INDICATION
     Dates: start: 20100101
  2. ABACAVIR SULFATE/LAMIVUDINE [Suspect]
     Indication: HIV TEST POSITIVE
     Dosage: 1.0 DOSAGE FORMS, ONCE
     Route: 048
     Dates: start: 20100101, end: 20100101

REACTIONS (4)
  - DEATH [None]
  - VIITH NERVE PARALYSIS [None]
  - MUSCULAR WEAKNESS [None]
  - MENINGITIS ASEPTIC [None]
